FAERS Safety Report 17139376 (Version 1)
Quarter: 2019Q4

REPORT INFORMATION
  Report Type: Spontaneous
  Country: DK (occurrence: DK)
  Receive Date: 20191211
  Receipt Date: 20191211
  Transmission Date: 20200122
  Serious: Yes (Other)
  Sender: FDA-Public Use
  Company Number: DK-ACCORD-164638

PATIENT
  Age: 20 Year
  Sex: Male

DRUGS (2)
  1. QUETIAPIN ACCORD [Suspect]
     Active Substance: QUETIAPINE
     Indication: DEPRESSION
     Dosage: DOSAGE: VARYING. STRENGTH: 25 MG AND 50 MG.
     Route: 048
     Dates: start: 20171023, end: 20180821
  2. DULOXETIN HEXAL [Suspect]
     Active Substance: DULOXETINE
     Indication: DEPRESSION
     Dosage: STRENGTH: 60 MG.
     Route: 048
     Dates: start: 20170816, end: 20180927

REACTIONS (10)
  - Nightmare [Not Recovered/Not Resolved]
  - Suicidal ideation [Recovering/Resolving]
  - Abnormal dreams [Not Recovered/Not Resolved]
  - Thinking abnormal [Not Recovered/Not Resolved]
  - Vision blurred [Not Recovered/Not Resolved]
  - Feeling drunk [Not Recovered/Not Resolved]
  - Depressed mood [Not Recovered/Not Resolved]
  - Fatigue [Not Recovered/Not Resolved]
  - Memory impairment [Not Recovered/Not Resolved]
  - Disturbance in attention [Not Recovered/Not Resolved]
